FAERS Safety Report 7986696-6 (Version None)
Quarter: 2011Q4

REPORT INFORMATION
  Report Type: 
  Country: None (occurrence: None)
  Receive Date: 20111216
  Receipt Date: 20110812
  Transmission Date: 20120403
  Serious: No
  Sender: FDA-Public Use
  Company Number: US-BRISTOL-MYERS SQUIBB COMPANY-15968647

PATIENT
  Age: 26 Year
  Sex: Female

DRUGS (2)
  1. VITAMIN AND MINERAL PRENATAL SUPPLEMENT W/ FOLIC ACID CAP [Concomitant]
  2. ABILIFY [Suspect]
     Dates: start: 20010101

REACTIONS (2)
  - PREGNANCY [None]
  - HALLUCINATION [None]
